FAERS Safety Report 11077748 (Version 3)
Quarter: 2020Q3

REPORT INFORMATION
  Report Type: Other
  Country: JP (occurrence: JP)
  Receive Date: 20150430
  Receipt Date: 20200909
  Transmission Date: 20201102
  Serious: Yes (Death)
  Sender: FDA-Public Use
  Company Number: JP-ROCHE-718572

PATIENT
  Age: 65 Year
  Sex: Male

DRUGS (21)
  1. MABTHERA [Suspect]
     Active Substance: RITUXIMAB
     Dosage: 600 MG, UNK
     Route: 042
     Dates: start: 20100412, end: 20100412
  2. MABTHERA [Suspect]
     Active Substance: RITUXIMAB
     Dosage: 600 MG, UNK
     Route: 042
     Dates: start: 20100607
  3. DOXORUBICIN [Concomitant]
     Active Substance: DOXORUBICIN
     Dosage: 80 MG, SINGLE
     Dates: start: 20100510
  4. PREDNISOLONE. [Concomitant]
     Active Substance: PREDNISOLONE
     Indication: LYMPHOMA
     Dosage: 100 MG, SINGLE
     Dates: start: 20100323
  5. ENDOXAN [Concomitant]
     Active Substance: CYCLOPHOSPHAMIDE
     Indication: LYMPHOMA
     Dosage: 1200 MG, SINGLE
     Dates: start: 20100323
  6. PREDNISOLONE. [Concomitant]
     Active Substance: PREDNISOLONE
     Dosage: 100 MG, SINGLE
     Dates: start: 20100412
  7. PREDNISOLONE. [Concomitant]
     Active Substance: PREDNISOLONE
     Dosage: 100 MG, SINGLE
     Dates: start: 20100510
  8. LOXOPROFEN SODIUM [Concomitant]
     Active Substance: LOXOPROFEN SODIUM
     Indication: PROPHYLAXIS
     Dosage: 1 TABLET, SINGLE
     Route: 048
  9. ENDOXAN [Concomitant]
     Active Substance: CYCLOPHOSPHAMIDE
     Dosage: 1200 MG, SINGLE
     Dates: start: 20100510
  10. VINCRISTINE [Concomitant]
     Active Substance: VINCRISTINE
     Dosage: 2 MG, SINGLE
     Dates: start: 20100510
  11. VINCRISTINE [Concomitant]
     Active Substance: VINCRISTINE
     Dosage: 2 MG, SINGLE
     Dates: start: 20100607
  12. DOXORUBICIN [Concomitant]
     Active Substance: DOXORUBICIN
     Dosage: 80 MG, SINGLE
     Dates: start: 20100412
  13. MABTHERA [Suspect]
     Active Substance: RITUXIMAB
     Indication: LYMPHOMA
     Dosage: 600 MG,
     Route: 041
     Dates: start: 20100323
  14. PREDNISOLONE. [Concomitant]
     Active Substance: PREDNISOLONE
     Dosage: 100 MG, SINGLE
     Dates: start: 20100607
  15. VINCRISTINE [Concomitant]
     Active Substance: VINCRISTINE
     Indication: LYMPHOMA
     Dosage: 2 MG, SINGLE
     Dates: start: 20100323
  16. VINCRISTINE [Concomitant]
     Active Substance: VINCRISTINE
     Dosage: 2 MG, SINGLE
     Dates: start: 20100412
  17. MABTHERA [Suspect]
     Active Substance: RITUXIMAB
     Dosage: 600 MG, UNK
     Route: 042
     Dates: start: 20100510
  18. VENA [Concomitant]
     Active Substance: DIPHENHYDRAMINE HYDROCHLORIDE
     Indication: PROPHYLAXIS
     Dosage: 3 TABLET, SINGLE
     Route: 048
  19. ENDOXAN [Concomitant]
     Active Substance: CYCLOPHOSPHAMIDE
     Dosage: 1200 MG, SINGLE
     Dates: start: 20100412
  20. ENDOXAN [Concomitant]
     Active Substance: CYCLOPHOSPHAMIDE
     Dosage: 1200 MG, SINGLE
     Dates: start: 20100607
  21. DOXORUBICIN [Concomitant]
     Active Substance: DOXORUBICIN
     Indication: LYMPHOMA
     Dosage: 80 MG, SINGLE
     Dates: start: 20100323

REACTIONS (1)
  - Progressive multifocal leukoencephalopathy [Fatal]

NARRATIVE: CASE EVENT DATE: 201005
